FAERS Safety Report 7986370 (Version 6)
Quarter: 2013Q1

REPORT INFORMATION
  Report Type: Spontaneous
  Country: US (occurrence: US)
  Receive Date: 20110610
  Receipt Date: 20130312
  Transmission Date: 20140127
  Serious: Yes (Other)
  Sender: FDA-Public Use
  Company Number: US-ROCHE-780838

PATIENT
  Age: 18 Year
  Sex: Female
  Weight: 56.7 kg

DRUGS (2)
  1. ACCUTANE [Suspect]
     Indication: ACNE
     Dosage: DOSE: 40 MG DAILY
     Route: 048
  2. ACCUTANE [Suspect]
     Dosage: DOSE INCREASED
     Route: 048
     Dates: start: 19991221, end: 200003

REACTIONS (10)
  - Gastrointestinal disorder [Unknown]
  - Injury [Unknown]
  - Inflammatory bowel disease [Unknown]
  - Ileus [Unknown]
  - Irritable bowel syndrome [Unknown]
  - Dry skin [Unknown]
  - Bronchitis [Unknown]
  - Hordeolum [Unknown]
  - Cheilitis [Unknown]
  - Acne [Unknown]
